FAERS Safety Report 6124257-4 (Version None)
Quarter: 2009Q1

REPORT INFORMATION
  Report Type: 
  Country: None (occurrence: None)
  Receive Date: 20090319
  Receipt Date: 20090309
  Transmission Date: 20090719
  Serious: Yes (Death)
  Sender: FDA-Public Use
  Company Number: DE-WATSON-2009-01613

PATIENT
  Age: 50 Year
  Sex: Female

DRUGS (3)
  1. HYDROXYCHLOROQUINE SULFATE (WATSON LABORATORIES) [Suspect]
     Indication: CUTANEOUS LUPUS ERYTHEMATOSUS
     Dosage: UNK
     Dates: start: 20020101
  2. PREDNISOLONE (WATSON LABORATORIES) [Suspect]
     Indication: CUTANEOUS LUPUS ERYTHEMATOSUS
     Dosage: UNK (UP TO 5MG/D)
     Route: 048
     Dates: start: 20020101
  3. CHLOROQUINE (WATSON LABORATORIES) [Suspect]
     Indication: CUTANEOUS LUPUS ERYTHEMATOSUS
     Dosage: 250 MG, DAILY
     Dates: start: 19950101

REACTIONS (1)
  - LUNG NEOPLASM MALIGNANT [None]
